FAERS Safety Report 7281714-5 (Version None)
Quarter: 2011Q1

REPORT INFORMATION
  Report Type: 
  Country: None (occurrence: None)
  Receive Date: 20110126
  Receipt Date: 20100621
  Transmission Date: 20110831
  Serious: Yes (Other)
  Sender: FDA-Public Use
  Company Number: 014276

PATIENT
  Age: 58 Year
  Sex: Male

DRUGS (9)
  1. OLANZAPINE [Suspect]
     Indication: CHOREA
     Dosage: (5 MG QD AT BEDTIME)
  2. PAROXETINE [Suspect]
     Indication: DEPRESSION
     Dosage: (30 MG QD)
  3. TRAZODONE [Suspect]
     Indication: DEPRESSION
     Dosage: (100 MG QD)
  4. TRAZODONE [Suspect]
     Indication: SLEEP DISORDER
     Dosage: (100 MG QD)
  5. KEPPRA [Suspect]
     Indication: HUNTINGTON'S DISEASE
     Dosage: (250 MG DAILY INCREASING BY 250 MG EVERY 4 DAYS TO A MAXIMUM OF 3000 MG DAILY), (REDUCED TO 500MG/DA
  6. FUROSEMIDE [Suspect]
     Indication: HYPERTENSION
     Dosage: (40 MG BID)
  7. NEURONTIN [Suspect]
     Indication: PAIN
     Dosage: (300 MG TID)
  8. DONEPEZIL HCL [Suspect]
     Indication: DEMENTIA
     Dosage: (10 MG QD)
  9. OXYBUTYNIN [Suspect]
     Indication: URINARY INCONTINENCE
     Dosage: (5 MG TID)

REACTIONS (14)
  - DYSARTHRIA [None]
  - PARKINSONISM [None]
  - DYSKINESIA [None]
  - BALANCE DISORDER [None]
  - SOMNOLENCE [None]
  - DRUG INTERACTION [None]
  - DEMENTIA [None]
  - DEPRESSION [None]
  - DYSTONIA [None]
  - GAIT DISTURBANCE [None]
  - BRADYKINESIA [None]
  - TORTICOLLIS [None]
  - MUSCLE RIGIDITY [None]
  - LETHARGY [None]
